FAERS Safety Report 7146013-0 (Version None)
Quarter: 2010Q4

REPORT INFORMATION
  Report Type: 
  Country: None (occurrence: None)
  Receive Date: 20101208
  Receipt Date: 20101201
  Transmission Date: 20110411
  Serious: Yes (Other)
  Sender: FDA-Public Use
  Company Number: US-JNJFOC-20100804970

PATIENT
  Sex: Female
  Weight: 52.16 kg

DRUGS (2)
  1. REMICADE [Suspect]
     Indication: RHEUMATOID ARTHRITIS
     Route: 042
  2. REMICADE [Suspect]
     Route: 042

REACTIONS (5)
  - BLOOD PRESSURE INCREASED [None]
  - CHEST DISCOMFORT [None]
  - FLUSHING [None]
  - INFUSION RELATED REACTION [None]
  - TACHYCARDIA [None]
